FAERS Safety Report 8215864-3 (Version None)
Quarter: 2012Q1

REPORT INFORMATION
  Report Type: 
  Country: None (occurrence: None)
  Receive Date: 20120316
  Receipt Date: 20120312
  Transmission Date: 20120608
  Serious: Yes (Other)
  Sender: FDA-Public Use
  Company Number: US-MERCK-1203USA01248

PATIENT
  Age: 54 Year
  Sex: Female
  Weight: 77 kg

DRUGS (2)
  1. ZOCOR [Suspect]
     Indication: BLOOD CHOLESTEROL
     Route: 048
     Dates: end: 20110401
  2. LAMOTRIGINE [Concomitant]
     Route: 065

REACTIONS (4)
  - HALLUCINATION [None]
  - TYPE 2 DIABETES MELLITUS [None]
  - HEART RATE IRREGULAR [None]
  - LIMB DISCOMFORT [None]
